FAERS Safety Report 9476667 (Version 1)
Quarter: 2013Q3

REPORT INFORMATION
  Report Type: Spontaneous
  Country: FR (occurrence: FR)
  Receive Date: 20130826
  Receipt Date: 20130826
  Transmission Date: 20140515
  Serious: Yes (Hospitalization)
  Sender: FDA-Public Use
  Company Number: PHHY2013FR090861

PATIENT
  Age: 82 Year
  Sex: Female

DRUGS (14)
  1. EUCREAS [Suspect]
     Indication: TYPE 2 DIABETES MELLITUS
     Dosage: 2 DF (METF 1000 MG / VILD 50 MG), QD
     Route: 048
     Dates: end: 20130626
  2. FUROSEMIDE [Suspect]
     Dosage: 40 MG, QD
     Route: 048
     Dates: end: 20130627
  3. ESOMEPRAZOLE [Suspect]
     Dosage: 40 MG, QD
     Route: 048
     Dates: end: 20130626
  4. RANITIDINE HYDROCHLORIDE [Suspect]
     Dosage: 300 MG, QD
     Route: 048
     Dates: end: 20130626
  5. COAPROVEL [Suspect]
     Indication: HYPOTENSION
     Dosage: 1 DF (HCTZ 25 MG/ IRBE 300 MG), QD
     Route: 048
     Dates: end: 20130626
  6. GALVUS [Concomitant]
     Dosage: UNK UKN, UNK
     Dates: start: 20130626
  7. APROVEL [Concomitant]
     Dosage: UNK UKN, UNK
     Dates: start: 20130626, end: 20130629
  8. LEVOTHYROX [Concomitant]
     Dosage: UNK UKN, UNK
  9. PLAVIX [Concomitant]
     Dosage: UNK UKN, UNK
  10. PRAVASTATIN SODIUM [Concomitant]
     Dosage: UNK UKN, UNK
  11. TARDYFERON [Concomitant]
     Dosage: UNK UKN, UNK
  12. IDEOS [Concomitant]
     Dosage: UNK UKN, UNK
  13. DUPHALAC [Concomitant]
     Dosage: UNK UKN, UNK
  14. ADENURIC [Concomitant]
     Dosage: UNK UKN, UNK

REACTIONS (4)
  - Hyponatraemia [Recovered/Resolved]
  - Syncope [Unknown]
  - Malaise [Recovered/Resolved]
  - Dizziness [Recovered/Resolved]
